FAERS Safety Report 11994368 (Version 1)
Quarter: 2016Q1

REPORT INFORMATION
  Report Type: Spontaneous
  Country: US (occurrence: US)
  Receive Date: 20160203
  Receipt Date: 20160203
  Transmission Date: 20160526
  Serious: Yes (Hospitalization)
  Sender: FDA-Public Use
  Company Number: US-UCBSA-2015029793

PATIENT
  Age: 35 Year
  Sex: Male

DRUGS (4)
  1. TRAMETINIB [Concomitant]
     Active Substance: TRAMETINIB
     Indication: NEOPLASM
     Dosage: UNK
     Dates: start: 201503
  2. DABRAFENIB [Concomitant]
     Active Substance: DABRAFENIB
     Indication: NEOPLASM
     Dosage: UNK
     Dates: start: 201503
  3. KEPPRA [Suspect]
     Active Substance: LEVETIRACETAM
     Indication: SEIZURE
     Dosage: UNK
     Dates: start: 2015
  4. TEMODAR [Concomitant]
     Active Substance: TEMOZOLOMIDE
     Indication: NEOPLASM
     Dosage: UNK
     Dates: start: 2015

REACTIONS (6)
  - Partial seizures [Unknown]
  - Feeding disorder [Unknown]
  - Speech disorder [Unknown]
  - Abasia [Unknown]
  - Asthenia [Unknown]
  - Memory impairment [Unknown]

NARRATIVE: CASE EVENT DATE: 2015
